FAERS Safety Report 4462984-5 (Version None)
Quarter: 2004Q3

REPORT INFORMATION
  Report Type: 
  Country: None (occurrence: None)
  Receive Date: 20040930
  Receipt Date: 20040924
  Transmission Date: 20050211
  Serious: Yes (Disabling)
  Sender: FDA-Public Use
  Company Number: 200412911EU

PATIENT
  Age: 72 Year
  Sex: Female

DRUGS (2)
  1. FLAGYL [Suspect]
     Indication: PERIODONTITIS
     Route: 048
     Dates: start: 20040325, end: 20040405
  2. MAREVAN [Concomitant]
     Indication: COAGULOPATHY

REACTIONS (2)
  - DYSGEUSIA [None]
  - WEIGHT DECREASED [None]
